FAERS Safety Report 8140646-0 (Version None)
Quarter: 2012Q1

REPORT INFORMATION
  Report Type: 
  Country: None (occurrence: None)
  Receive Date: 20120216
  Receipt Date: 20120123
  Transmission Date: 20120608
  Serious: No
  Sender: FDA-Public Use
  Company Number: US-ROXANE LABORATORIES, INC.-2012-RO-00528RO

PATIENT

DRUGS (1)
  1. BUPRENORPHINE HCL [Suspect]

REACTIONS (1)
  - PRODUCT SUBSTITUTION ISSUE [None]
